FAERS Safety Report 12147947 (Version 2)
Quarter: 2016Q2

REPORT INFORMATION
  Report Type: Spontaneous
  Country: JP (occurrence: JP)
  Receive Date: 20160304
  Receipt Date: 20160427
  Transmission Date: 20160815
  Serious: Yes (Hospitalization, Other)
  Sender: FDA-Public Use
  Company Number: JP-ASTRAZENECA-2016SE21886

PATIENT
  Age: 64 Year
  Sex: Female

DRUGS (2)
  1. PLETAAL [Concomitant]
     Active Substance: CILOSTAZOL
     Dosage: DOSE UNKNOWN
     Route: 065
  2. ARIMIDEX [Suspect]
     Active Substance: ANASTROZOLE
     Indication: BREAST CANCER FEMALE
     Route: 048

REACTIONS (1)
  - Cerebral haemorrhage [Unknown]
